FAERS Safety Report 10538189 (Version 4)
Quarter: 2014Q4

REPORT INFORMATION
  Report Type: Report from Study
  Country: AU (occurrence: AU)
  Receive Date: 20141023
  Receipt Date: 20141105
  Transmission Date: 20150529
  Serious: Yes (Hospitalization, Other)
  Sender: FDA-Public Use
  Company Number: AU-MYLANLABS-2014SP002871

PATIENT

DRUGS (19)
  1. AS-OXALIPLATIN, GN- OXALIPLATIN [Suspect]
     Active Substance: OXALIPLATIN
     Indication: COLORECTAL CANCER METASTATIC
     Route: 042
     Dates: start: 20130709
  2. AS-OXALIPLATIN, GN- OXALIPLATIN [Suspect]
     Active Substance: OXALIPLATIN
     Dates: start: 20130723
  3. IBUPROFEN                          /00109205/ [Concomitant]
     Active Substance: IBUPROFEN
     Dates: start: 20130610
  4. FLUOROURACIL. [Suspect]
     Active Substance: FLUOROURACIL
     Dosage: UNK
     Route: 042
     Dates: start: 20140819
  5. IRINOTECAN HCL [Suspect]
     Active Substance: IRINOTECAN HYDROCHLORIDE
     Route: 042
     Dates: start: 20140513
  6. PANTOPRAZOLE [Concomitant]
     Active Substance: PANTOPRAZOLE SODIUM
     Dates: start: 20140802
  7. IRINOTECAN HCL [Suspect]
     Active Substance: IRINOTECAN HYDROCHLORIDE
     Route: 042
     Dates: start: 20140819
  8. LOPERAMIDE HYDROCHLORIDE. [Concomitant]
     Active Substance: LOPERAMIDE HYDROCHLORIDE
  9. IRINOTECAN HCL [Suspect]
     Active Substance: IRINOTECAN HYDROCHLORIDE
     Indication: COLORECTAL CANCER METASTATIC
     Route: 042
     Dates: start: 20140429
  10. MAXOLON [Concomitant]
     Active Substance: METOCLOPRAMIDE HYDROCHLORIDE
  11. OXYNORM [Concomitant]
     Active Substance: OXYCODONE HYDROCHLORIDE
     Dates: start: 20140731
  12. FLUOROURACIL. [Suspect]
     Active Substance: FLUOROURACIL
     Dosage: UNK
     Route: 042
     Dates: start: 20140417
  13. BEVACIZUMAB [Suspect]
     Active Substance: BEVACIZUMAB
     Indication: COLORECTAL CANCER METASTATIC
     Dates: start: 20130709
  14. BEVACIZUMAB [Suspect]
     Active Substance: BEVACIZUMAB
     Dates: start: 20140415
  15. FLUOROURACIL. [Suspect]
     Active Substance: FLUOROURACIL
     Indication: COLORECTAL CANCER METASTATIC
     Dosage: 890 MG, UNK
     Route: 042
     Dates: start: 20130709
  16. FLUOROURACIL. [Suspect]
     Active Substance: FLUOROURACIL
     Route: 042
     Dates: start: 20130709
  17. FOLINIC ACID [Suspect]
     Active Substance: LEUCOVORIN
     Indication: COLORECTAL CANCER METASTATIC
     Route: 042
     Dates: start: 20130709
  18. FOLINIC ACID [Suspect]
     Active Substance: LEUCOVORIN
     Dates: start: 20140415
  19. BEVACIZUMAB [Suspect]
     Active Substance: BEVACIZUMAB
     Dates: start: 20140819

REACTIONS (12)
  - Pulmonary embolism [Unknown]
  - Diarrhoea [Unknown]
  - Colorectal cancer metastatic [Unknown]
  - Haematuria [Recovered/Resolved]
  - Pleuritic pain [Recovered/Resolved]
  - Vomiting [Unknown]
  - Abdominal pain [Not Recovered/Not Resolved]
  - Nausea [Unknown]
  - Gastroenteritis [Recovered/Resolved]
  - Dyspnoea [Unknown]
  - Pyrexia [Unknown]
  - Disease progression [Unknown]

NARRATIVE: CASE EVENT DATE: 20130727
